FAERS Safety Report 8832172 (Version 2)
Quarter: 2012Q4

REPORT INFORMATION
  Report Type: 
  Country: AU (occurrence: AU)
  Receive Date: 20121009
  Receipt Date: 20121122
  Transmission Date: 20130627
  Serious: Yes (Death, Life-Threatening)
  Sender: FDA-Public Use
  Company Number: AU-ROCHE-1138391

PATIENT
  Age: 67 Year
  Sex: Male

DRUGS (2)
  1. ALTEPLASE [Suspect]
     Indication: ISCHAEMIA
     Route: 042
     Dates: start: 20120914, end: 20120914
  2. ALTEPLASE [Suspect]
     Indication: HEMIPARESIS

REACTIONS (10)
  - Pneumonia [Fatal]
  - Agitation [Unknown]
  - Respiratory rate increased [Unknown]
  - Hemiplegia [Unknown]
  - Basal ganglia haemorrhage [Unknown]
  - Depressed level of consciousness [Unknown]
  - Intraventricular haemorrhage [Unknown]
  - Pneumonia aspiration [Not Recovered/Not Resolved]
  - Cerebral haemorrhage [Not Recovered/Not Resolved]
  - Cerebral haemorrhage [Unknown]
